FAERS Safety Report 17960119 (Version 4)
Quarter: 2022Q2

REPORT INFORMATION
  Report Type: Report from Study
  Country: US (occurrence: None)
  Receive Date: 20200630
  Receipt Date: 20220414
  Transmission Date: 20220721
  Serious: Yes (Other)
  Sender: FDA-Public Use
  Company Number: US-ROCHE-2579954

PATIENT
  Age: 59 Year
  Sex: Female
  Weight: 52.2 kg

DRUGS (4)
  1. COBIMETINIB [Suspect]
     Active Substance: COBIMETINIB
     Indication: Lung adenocarcinoma
     Dosage: 60 MG PO DAILY ON DAYS 1-21, CYCLES REPEAT EVERY 28 DAYS ?LAST DOSE: 11/FEB/2020
     Route: 048
     Dates: start: 20200128
  2. COBIMETINIB [Suspect]
     Active Substance: COBIMETINIB
     Route: 048
     Dates: start: 20200128
  3. COBIMETINIB [Suspect]
     Active Substance: COBIMETINIB
     Route: 048
  4. ATEZOLIZUMAB [Suspect]
     Active Substance: ATEZOLIZUMAB
     Indication: Lung adenocarcinoma
     Dosage: OVER 60 MINUTES ON DAYS 1 AND 15.?1680 MG
     Route: 041
     Dates: start: 20200128

REACTIONS (2)
  - Dermatitis acneiform [Recovered/Resolved]
  - Ejection fraction decreased [Unknown]

NARRATIVE: CASE EVENT DATE: 20200211
